FAERS Safety Report 15354534 (Version 4)
Quarter: 2019Q1

REPORT INFORMATION
  Report Type: Report from Study
  Country: CN (occurrence: CN)
  Receive Date: 20180906
  Receipt Date: 20190301
  Transmission Date: 20190417
  Serious: Yes (Hospitalization)
  Sender: FDA-Public Use
  Company Number: CN-ROCHE-2180012

PATIENT
  Age: 71 Year
  Sex: Female
  Weight: 86 kg

DRUGS (28)
  1. IRBESARTAN. [Concomitant]
     Active Substance: IRBESARTAN
     Indication: HYPERTENSION
     Route: 065
     Dates: start: 20091212, end: 20180913
  2. POTASSIUM CHLORIDE. [Concomitant]
     Active Substance: POTASSIUM CHLORIDE
     Indication: HYPOKALAEMIA
     Route: 065
     Dates: start: 20180813, end: 20180813
  3. DEXAMETHASONE SODIUM PHOSPHATE. [Concomitant]
     Active Substance: DEXAMETHASONE SODIUM PHOSPHATE
     Route: 065
     Dates: start: 20180902, end: 20180902
  4. MORPHINE [Concomitant]
     Active Substance: MORPHINE
     Route: 065
     Dates: start: 20180902, end: 20180903
  5. CEFOPERAZONE SODIUM [Concomitant]
     Active Substance: CEFOPERAZONE SODIUM
     Route: 065
     Dates: start: 20180906, end: 20180906
  6. AMRINONE [Concomitant]
     Active Substance: INAMRINONE
     Route: 065
     Dates: start: 20180906, end: 20180912
  7. CALCIUM CARBONATE/CHOLECALCIFEROL [Concomitant]
     Active Substance: CALCIUM CARBONATE\CHOLECALCIFEROL
     Indication: OSTEOPOROSIS
     Route: 065
     Dates: start: 20170310, end: 20180913
  8. SPIRONOLACTONE. [Concomitant]
     Active Substance: SPIRONOLACTONE
     Indication: OEDEMA
     Route: 065
     Dates: start: 20180813, end: 20180813
  9. CEFOPERAZONE SODIUM [Concomitant]
     Active Substance: CEFOPERAZONE SODIUM
     Route: 065
     Dates: start: 20180906, end: 20180913
  10. AMRINONE [Concomitant]
     Active Substance: INAMRINONE
     Route: 065
     Dates: start: 20180903, end: 20180903
  11. DEXTROSE/SODIUM CHLORIDE [Concomitant]
     Route: 065
     Dates: start: 20180831, end: 20180913
  12. VITAMIN C [Concomitant]
     Active Substance: ASCORBIC ACID
     Route: 065
     Dates: start: 20180910, end: 20180911
  13. TRASTUZUMAB EMTANSINE [Suspect]
     Active Substance: ADO-TRASTUZUMAB EMTANSINE
     Indication: HER-2 POSITIVE BREAST CANCER
     Dosage: MOST RECENT DOSE OF TRASTUZUMAB EMTANSINE PRIOR TO AE ONSET WAS ADMINISTERED ON 21/AUG/2018 (313.2 M
     Route: 042
     Dates: start: 20180709
  14. SODIUM CHLORIDE. [Concomitant]
     Active Substance: SODIUM CHLORIDE
     Indication: HYPOKALAEMIA
     Route: 065
     Dates: start: 20180813, end: 20180814
  15. SODIUM CHLORIDE. [Concomitant]
     Active Substance: SODIUM CHLORIDE
     Indication: HYPOCHLORAEMIA
     Dosage: COCENTRATED
     Route: 065
     Dates: start: 20180903, end: 20180903
  16. POTASSIUM CHLORIDE. [Concomitant]
     Active Substance: POTASSIUM CHLORIDE
     Indication: HYPOCHLORAEMIA
     Route: 065
     Dates: start: 20180909, end: 20180913
  17. DEXAMETHASONE SODIUM PHOSPHATE. [Concomitant]
     Active Substance: DEXAMETHASONE SODIUM PHOSPHATE
     Route: 065
     Dates: start: 20180908, end: 20180912
  18. LANQIN ORAL LIQUID [Concomitant]
     Route: 065
     Dates: start: 20180907, end: 20180907
  19. DEXTROSE/SODIUM CHLORIDE [Concomitant]
     Route: 065
     Dates: start: 20180909, end: 20180911
  20. CIMETIDINE [Concomitant]
     Active Substance: CIMETIDINE
     Indication: PEPTIC ULCER
     Route: 065
     Dates: start: 20180910, end: 20180911
  21. FELODIPINE. [Concomitant]
     Active Substance: FELODIPINE
     Indication: HYPERTENSION
     Route: 065
     Dates: start: 20091212, end: 20180913
  22. MORPHINE [Concomitant]
     Active Substance: MORPHINE
     Route: 065
     Dates: start: 20180907, end: 20180913
  23. VITAMIN B6 [Concomitant]
     Active Substance: PYRIDOXINE HYDROCHLORIDE
     Route: 065
     Dates: start: 20180904, end: 20180913
  24. POTASSIUM CHLORIDE. [Concomitant]
     Active Substance: POTASSIUM CHLORIDE
     Route: 065
     Dates: start: 20180907, end: 20180907
  25. TAZOBACTAM SODIUM [Concomitant]
     Active Substance: TAZOBACTAM SODIUM
     Route: 065
     Dates: start: 20180906, end: 20180913
  26. MORPHINE HYDROCHLORIDE [Concomitant]
     Active Substance: MORPHINE HYDROCHLORIDE
     Indication: PAIN IN EXTREMITY
     Route: 065
     Dates: start: 20180625, end: 20180913
  27. FUROSEMIDE. [Concomitant]
     Active Substance: FUROSEMIDE
     Indication: OEDEMA
     Route: 065
     Dates: start: 20180813, end: 20180813
  28. PAZUFLOXACIN MESILATE [Concomitant]
     Active Substance: PAZUFLOXACIN MESILATE
     Route: 065
     Dates: start: 20180904, end: 20180913

REACTIONS (1)
  - Hypoproteinaemia [Unknown]

NARRATIVE: CASE EVENT DATE: 20180831
